FAERS Safety Report 12313309 (Version 1)
Quarter: 2016Q2

REPORT INFORMATION
  Report Type: Spontaneous
  Country: US (occurrence: None)
  Receive Date: 20160427
  Receipt Date: 20160427
  Transmission Date: 20160815
  Serious: Yes (Life-Threatening, Other)
  Sender: FDA-Public Use
  Company Number: None

PATIENT
  Age: 40 Year
  Sex: Female
  Weight: 58.97 kg

DRUGS (3)
  1. FLORASTOR PROBIOTICS [Concomitant]
  2. MULTIVITAMIN [Concomitant]
     Active Substance: VITAMINS
  3. CEFDINIR. [Suspect]
     Active Substance: CEFDINIR
     Indication: INFECTION
     Dates: start: 20150603, end: 20150610

REACTIONS (2)
  - Clostridium difficile infection [None]
  - Gastrointestinal disorder [None]

NARRATIVE: CASE EVENT DATE: 20150610
